FAERS Safety Report 8511127-7 (Version None)
Quarter: 2012Q3

REPORT INFORMATION
  Report Type: 
  Country: None (occurrence: None)
  Receive Date: 20120716
  Receipt Date: 20120709
  Transmission Date: 20120928
  Serious: Yes (Hospitalization)
  Sender: FDA-Public Use
  Company Number: IT-JNJFOC-20120409132

PATIENT
  Sex: Male

DRUGS (4)
  1. PAROXETINE HYDROCHLORIDE [Concomitant]
     Indication: AFFECT LABILITY
     Dates: start: 20120123
  2. EN [Concomitant]
     Indication: ANXIETY
     Dates: start: 20120214
  3. PALIPERIDONE PALMITATE [Suspect]
     Indication: SCHIZOPHRENIA
     Route: 030
     Dates: start: 20120326
  4. AKINETON [Concomitant]
     Indication: EXTRAPYRAMIDAL DISORDER
     Dates: start: 20120101

REACTIONS (1)
  - DELUSION [None]
